FAERS Safety Report 25621702 (Version 7)
Quarter: 2025Q4

REPORT INFORMATION
  Report Type: Spontaneous
  Country: US (occurrence: US)
  Receive Date: 20250730
  Receipt Date: 20251015
  Transmission Date: 20260117
  Serious: Yes (Other)
  Sender: ROCHE
  Company Number: US-ROCHE-10000347842

PATIENT
  Age: 37 Year
  Sex: Female

DRUGS (5)
  1. XOLAIR PFS [Suspect]
     Active Substance: OMALIZUMAB
     Indication: Asthma
     Dosage: STRENGTH:150MG/ML, 300MG/2ML)
     Route: 058
     Dates: start: 202305
  2. XOLAIR PFS [Suspect]
     Active Substance: OMALIZUMAB
  3. HAEGARDA [Concomitant]
     Active Substance: HUMAN C1-ESTERASE INHIBITOR
  4. SOD CHLOR POS STERILE F (10 ML) [Concomitant]
  5. NORMAL SALINE FLUSH (5 ML) [Concomitant]

REACTIONS (7)
  - Abdominal distension [Recovered/Resolved]
  - Swelling face [Recovered/Resolved]
  - Pharyngeal swelling [Recovered/Resolved]
  - Swelling [Unknown]
  - Asthma [Unknown]
  - Angioedema [Unknown]
  - Laryngeal disorder [Unknown]

NARRATIVE: CASE EVENT DATE: 20250926
